FAERS Safety Report 5218096-6 (Version None)
Quarter: 2007Q1

REPORT INFORMATION
  Report Type: 
  Country: None (occurrence: None)
  Receive Date: 20070124
  Receipt Date: 20070116
  Transmission Date: 20070707
  Serious: Yes (Hospitalization)
  Sender: FDA-Public Use
  Company Number: US-MERCK-0701USA03142

PATIENT
  Age: 71 Year
  Sex: Male

DRUGS (5)
  1. DECADRON [Suspect]
     Indication: MULTIPLE MYELOMA
     Route: 048
  2. THALIDOMIDE [Suspect]
     Route: 065
  3. DARBEPOETIN ALFA [Concomitant]
     Route: 065
  4. ZOLEDRONIC ACID [Concomitant]
     Route: 065
  5. WARFARIN [Concomitant]
     Route: 065

REACTIONS (1)
  - TUMOUR LYSIS SYNDROME [None]
